FAERS Safety Report 8480559 (Version 5)
Quarter: 2014Q2

REPORT INFORMATION
  Report Type: Spontaneous
  Country: US (occurrence: US)
  Receive Date: 20120328
  Receipt Date: 20140602
  Transmission Date: 20141212
  Serious: Yes (Hospitalization, Disabling, Other)
  Sender: FDA-Public Use
  Company Number: US-009507513-1203USA02912

PATIENT
  Sex: Female
  Weight: 77.98 kg

DRUGS (5)
  1. FOSAMAX [Suspect]
     Dosage: UNK
     Route: 048
  2. FOSAMAX [Suspect]
     Dosage: 35 MG, QW
     Route: 048
     Dates: start: 20030211, end: 20051026
  3. FOSAMAX [Suspect]
     Dosage: 70 MG, QW
     Route: 048
     Dates: start: 20051123, end: 20060317
  4. VITAMINS (UNSPECIFIED) [Concomitant]
     Indication: ROUTINE HEALTH MAINTENANCE
     Dosage: 1 QD
     Dates: start: 1964
  5. CALCIUM (UNSPECIFIED) [Concomitant]
     Indication: ROUTINE HEALTH MAINTENANCE
     Dosage: 1 QD
     Dates: start: 1976

REACTIONS (50)
  - Femur fracture [Recovered/Resolved]
  - Intramedullary rod insertion [Unknown]
  - Femur fracture [Unknown]
  - Intramedullary rod insertion [Unknown]
  - Bone disorder [Unknown]
  - Tibia fracture [Unknown]
  - Foot fracture [Unknown]
  - Hand fracture [Unknown]
  - Limb operation [Unknown]
  - Fibula fracture [Unknown]
  - Spinal fracture [Unknown]
  - Spinal fracture [Unknown]
  - Ankle fracture [Unknown]
  - Osteoporosis [Unknown]
  - Osteopenia [Unknown]
  - Spinal compression fracture [Unknown]
  - Ankle fracture [Unknown]
  - Joint dislocation [Unknown]
  - Deep vein thrombosis [Unknown]
  - Intervertebral disc protrusion [Unknown]
  - Spinal osteoarthritis [Unknown]
  - Large intestine polyp [Unknown]
  - Hypercholesterolaemia [Unknown]
  - Gastric ulcer perforation [Unknown]
  - Herpes zoster [Unknown]
  - Contusion [Unknown]
  - Migraine [Unknown]
  - Depression [Unknown]
  - Liver function test abnormal [Unknown]
  - Osteoarthritis [Unknown]
  - Peripheral swelling [Unknown]
  - Hepatic steatosis [Unknown]
  - Scoliosis [Unknown]
  - Ligament sprain [Unknown]
  - Contusion [Unknown]
  - Ligament sprain [Unknown]
  - Hypoaesthesia [Unknown]
  - Spinal compression fracture [Unknown]
  - Alcohol abuse [Unknown]
  - Gastric ulcer surgery [Unknown]
  - Arthroscopy [Unknown]
  - Spinal compression fracture [Unknown]
  - Back pain [Not Recovered/Not Resolved]
  - Hypothyroidism [Unknown]
  - Peptic ulcer [Unknown]
  - Vascular calcification [Unknown]
  - Atelectasis [Unknown]
  - Hiatus hernia [Unknown]
  - Thoracic vertebral fracture [Unknown]
  - Abdominal discomfort [Unknown]
